FAERS Safety Report 7241086-9 (Version None)
Quarter: 2011Q1

REPORT INFORMATION
  Report Type: 
  Country: None (occurrence: None)
  Receive Date: 20110120
  Receipt Date: 20110120
  Transmission Date: 20110831
  Serious: No
  Sender: FDA-Public Use
  Company Number: None

PATIENT

DRUGS (3)
  1. CARDIOLITE [Suspect]
     Dates: start: 20101202
  2. CARDIOLITE [Suspect]
     Dates: start: 20101201
  3. CARDIOLITE [Suspect]

REACTIONS (4)
  - CHEMICAL INJURY [None]
  - INJECTION SITE RASH [None]
  - SKIN DISORDER [None]
  - SKIN EXFOLIATION [None]
